FAERS Safety Report 4320832-8 (Version None)
Quarter: 2004Q1

REPORT INFORMATION
  Report Type: 
  Country: None (occurrence: None)
  Receive Date: 20040315
  Receipt Date: 20030321
  Transmission Date: 20041129
  Serious: Yes (Other)
  Sender: FDA-Public Use
  Company Number: PHEH2003US02044

PATIENT
  Age: 31 Year
  Sex: Female
  Weight: 47.6 kg

DRUGS (2)
  1. TRILEPTAL [Suspect]
     Indication: CONVULSION
     Dosage: 150 MG, BID, ORAL; SEE IMAGE
     Route: 048
     Dates: start: 20030115, end: 20030216
  2. LACTULOSE [Concomitant]

REACTIONS (2)
  - CONFUSIONAL STATE [None]
  - CONVULSION [None]
